FAERS Safety Report 24896058 (Version 1)
Quarter: 2025Q1

REPORT INFORMATION
  Report Type: Spontaneous
  Country: US (occurrence: US)
  Receive Date: 20250128
  Receipt Date: 20250128
  Transmission Date: 20250409
  Serious: Yes (Death)
  Sender: ALKERMES
  Company Number: US-ALKERMES INC.-ALK-2025-000228

PATIENT
  Age: 37 Year
  Sex: Male
  Weight: 71.202 kg

DRUGS (1)
  1. VIVITROL [Suspect]
     Active Substance: NALTREXONE
     Indication: Drug dependence
     Route: 030
     Dates: end: 20241231

REACTIONS (1)
  - Death [Fatal]

NARRATIVE: CASE EVENT DATE: 20241231
